FAERS Safety Report 19873454 (Version 1)
Quarter: 2021Q3

REPORT INFORMATION
  Report Type: Spontaneous
  Country: US (occurrence: US)
  Receive Date: 20210923
  Receipt Date: 20210923
  Transmission Date: 20211014
  Serious: No
  Sender: FDA-Public Use
  Company Number: US-GILEAD-2021-0549392

PATIENT
  Age: 34 Year
  Sex: Female

DRUGS (1)
  1. SOFOSBUVIR;VELPATASVIR [Suspect]
     Active Substance: SOFOSBUVIR\VELPATASVIR
     Indication: HEPATITIS C
     Dosage: 1 DOSAGE FORM, QD, IN THE MORNING FOR 28 DAYS
     Route: 048
     Dates: end: 202107

REACTIONS (2)
  - Fatigue [Recovered/Resolved]
  - Off label use [Recovered/Resolved]
